FAERS Safety Report 8816826 (Version 1)
Quarter: 2012Q4

REPORT INFORMATION
  Report Type: Spontaneous
  Country: JP (occurrence: None)
  Receive Date: 20121001
  Receipt Date: 20121001
  Transmission Date: 20130627
  Serious: Yes (Other)
  Sender: FDA-Public Use
  Company Number: 2010JP005771

PATIENT
  Age: 8 Month
  Sex: Male

DRUGS (6)
  1. PROGRAF [Suspect]
     Indication: CORD BLOOD TRANSPLANT THERAPY
  2. PROGRAF [Suspect]
     Indication: PROPHYLAXIS AGAINST GRAFT VERSUS HOST DISEASE
  3. PROGRAF [Suspect]
  4. METHYLPREDNISOLONE [Concomitant]
  5. CYCLOPHOSPHAMIDE [Concomitant]
  6. FLUDARABINE [Concomitant]

REACTIONS (4)
  - Drug ineffective [None]
  - Acute graft versus host disease [None]
  - Chronic graft versus host disease [None]
  - Food allergy [None]
